FAERS Safety Report 6500100-6 (Version None)
Quarter: 2009Q4

REPORT INFORMATION
  Report Type: 
  Country: None (occurrence: None)
  Receive Date: 20091214
  Receipt Date: 20091214
  Transmission Date: 20100525
  Serious: Yes (Other)
  Sender: FDA-Public Use
  Company Number: None

PATIENT
  Sex: Male
  Weight: 92.9874 kg

DRUGS (1)
  1. ULORIC [Suspect]
     Indication: BLOOD URIC ACID INCREASED
     Dosage: 40MG.
     Dates: start: 20091211, end: 20091212

REACTIONS (2)
  - DIZZINESS [None]
  - GAIT DISTURBANCE [None]
